FAERS Safety Report 12443585 (Version 4)
Quarter: 2016Q4

REPORT INFORMATION
  Report Type: Report from Study
  Country: US (occurrence: US)
  Receive Date: 20160607
  Receipt Date: 20161017
  Transmission Date: 20170207
  Serious: Yes (Death, Hospitalization, Other)
  Sender: FDA-Public Use
  Company Number: US-GILEAD-2016-0217375

PATIENT
  Age: 70 Year
  Sex: Female

DRUGS (2)
  1. AMBRISENTAN [Suspect]
     Active Substance: AMBRISENTAN
     Indication: PRODUCT USED FOR UNKNOWN INDICATION
     Dosage: 10 MG, QD
     Route: 065
     Dates: start: 20131008
  2. ADCIRCA [Concomitant]
     Active Substance: TADALAFIL

REACTIONS (3)
  - Respiratory failure [Unknown]
  - Terminal state [Unknown]
  - Death [Fatal]

NARRATIVE: CASE EVENT DATE: 20161005
